FAERS Safety Report 25055055 (Version 2)
Quarter: 2025Q4

REPORT INFORMATION
  Report Type: Report from Study
  Country: US (occurrence: US)
  Receive Date: 20250308
  Receipt Date: 20251111
  Transmission Date: 20260118
  Serious: No
  Sender: ACADIA PHARMACEUTICALS
  Company Number: US-ACADIA PHARMACEUTICALS INC.-ACA-2025-TRF-002260

PATIENT
  Age: 17 Year
  Sex: Female

DRUGS (5)
  1. DAYBUE [Suspect]
     Active Substance: TROFINETIDE
     Indication: Product used for unknown indication
     Dosage: 40 MILLILITER, BID (200 MG/ML)
     Route: 048
     Dates: start: 202305
  2. MELATONIN [Concomitant]
     Active Substance: MELATONIN
  3. CLARITIN [Concomitant]
     Active Substance: LORATADINE
  4. TRAZODONE [Concomitant]
     Active Substance: TRAZODONE HYDROCHLORIDE
  5. MIRALAX [Concomitant]
     Active Substance: POLYETHYLENE GLYCOL 3350

REACTIONS (5)
  - Constipation [Not Recovered/Not Resolved]
  - Retching [Recovered/Resolved]
  - Product size issue [Recovered/Resolved]
  - Product use complaint [Recovered/Resolved]
  - Intentional dose omission [Unknown]

NARRATIVE: CASE EVENT DATE: 20230601
